FAERS Safety Report 18842540 (Version 1)
Quarter: 2021Q1

REPORT INFORMATION
  Report Type: Spontaneous
  Country: CA (occurrence: CA)
  Receive Date: 20210203
  Receipt Date: 20210203
  Transmission Date: 20210419
  Serious: Yes (Life-Threatening, Hospitalization, Other)
  Sender: FDA-Public Use
  Company Number: CA-GREER LABORATORIES, INC.-2106283

PATIENT
  Age: 46 Year
  Sex: Male

DRUGS (3)
  1. POLLENS ? WEEDS AND GARDEN PLANTS, RAGWEED, MIXED AMBROSIA [Suspect]
     Active Substance: AMBROSIA ARTEMISIIFOLIA POLLEN\AMBROSIA TRIFIDA POLLEN
     Route: 058
  2. POLLENS ? GRASSES, GS K?O?R?T GRASS MIX [Suspect]
     Active Substance: AGROSTIS GIGANTEA POLLEN\DACTYLIS GLOMERATA POLLEN\PHLEUM PRATENSE POLLEN\POA PRATENSIS POLLEN
     Route: 058
  3. POLLENS ? TREES, TREE MIX 11 [Suspect]
     Active Substance: ACER SACCHARUM POLLEN\BETULA NIGRA POLLEN\CARYA OVATA POLLEN\FAGUS GRANDIFOLIA POLLEN\FRAXINUS AMERICANA POLLEN\JUGLANS NIGRA POLLEN\PLATANUS OCCIDENTALIS POLLEN\POPULUS DELTOIDES POLLEN\QUERCUS RUBRA POLLEN\SALIX NIGRA POLLEN\ULMUS AMERICANA POLLEN
     Indication: HYPERSENSITIVITY
     Route: 058

REACTIONS (4)
  - Anaphylactic reaction [Recovered/Resolved]
  - Product formulation issue [Recovered/Resolved]
  - Product prescribing error [Recovered/Resolved]
  - Incorrect dose administered [Recovered/Resolved]

NARRATIVE: CASE EVENT DATE: 20210107
